FAERS Safety Report 9822477 (Version 1)
Quarter: 2014Q1

REPORT INFORMATION
  Report Type: Spontaneous
  Country: CA (occurrence: CA)
  Receive Date: 20140116
  Receipt Date: 20140116
  Transmission Date: 20141002
  Serious: Yes (Life-Threatening, Hospitalization, Disabling)
  Sender: FDA-Public Use
  Company Number: CA-ASTRAZENECA-2014SE02607

PATIENT
  Age: 88 Year
  Sex: Female

DRUGS (10)
  1. SEROQUEL XR [Suspect]
     Route: 048
  2. PREGABALIN [Suspect]
     Route: 048
  3. PREGABALIN [Suspect]
     Route: 048
  4. ATIVAN [Concomitant]
  5. CELEXA [Concomitant]
  6. COVERSYL [Concomitant]
  7. HYDRODIURIL [Concomitant]
  8. NORVASC [Concomitant]
  9. REMERON [Concomitant]
  10. TENORMIN [Concomitant]

REACTIONS (4)
  - Cerebral haemorrhage [Unknown]
  - Concomitant disease aggravated [Unknown]
  - Fall [Unknown]
  - Skull fracture [Unknown]
